FAERS Safety Report 7236355-2 (Version None)
Quarter: 2011Q1

REPORT INFORMATION
  Report Type: 
  Country: None (occurrence: None)
  Receive Date: 20110120
  Receipt Date: 20110118
  Transmission Date: 20110831
  Serious: Yes (Other)
  Sender: FDA-Public Use
  Company Number: GXKR2011DE00616

PATIENT
  Sex: Female

DRUGS (4)
  1. MPA GYN [Suspect]
     Dosage: 250 MG, UNK
     Route: 048
     Dates: start: 20040301
  2. SELENIUM [Concomitant]
     Route: 048
  3. VISCUM ALBUM [Concomitant]
  4. ZINK [Concomitant]
     Route: 065

REACTIONS (5)
  - APHTHOUS STOMATITIS [None]
  - RASH [None]
  - HERPES VIRUS INFECTION [None]
  - SKIN BURNING SENSATION [None]
  - CHONDROMALACIA [None]
